FAERS Safety Report 9527969 (Version 1)
Quarter: 2013Q3

REPORT INFORMATION
  Report Type: Spontaneous
  Country: US (occurrence: US)
  Receive Date: 20130917
  Receipt Date: 20130917
  Transmission Date: 20140515
  Serious: No
  Sender: FDA-Public Use
  Company Number: US-JNJFOC-20130904584

PATIENT
  Age: 42 Year
  Sex: Female
  Weight: 91.17 kg

DRUGS (1)
  1. DURAGESIC [Suspect]
     Indication: PAIN
     Route: 062
     Dates: start: 2012

REACTIONS (3)
  - Urinary tract infection [Unknown]
  - Drug dose omission [Not Recovered/Not Resolved]
  - Product quality issue [Unknown]
